FAERS Safety Report 4870513-7 (Version None)
Quarter: 2005Q4

REPORT INFORMATION
  Report Type: 
  Country: None (occurrence: None)
  Receive Date: 20051228
  Receipt Date: 20051214
  Transmission Date: 20060501
  Serious: Yes (Other)
  Sender: FDA-Public Use
  Company Number: 33469

PATIENT
  Age: 36 Year
  Sex: Male

DRUGS (12)
  1. VIGAMOX [Suspect]
     Dates: start: 20051122
  2. NEVANAC [Suspect]
     Dates: start: 20051122
  3. ISTALOL [Concomitant]
  4. PRED FORTE [Concomitant]
  5. XALATAN SOLUTION [Concomitant]
  6. PHENOBARBITAL [Concomitant]
  7. TEGRETOL [Concomitant]
  8. TRICOR [Concomitant]
  9. VETIA [Concomitant]
  10. ALBUTEROL [Concomitant]
  11. INTAL [Concomitant]
  12. VERELAN [Concomitant]

REACTIONS (7)
  - BLOOD PRESSURE INCREASED [None]
  - CATARACT OPERATION [None]
  - CHEST PAIN [None]
  - CONVULSION [None]
  - DYSPNOEA [None]
  - HEADACHE [None]
  - PALPITATIONS [None]
